FAERS Safety Report 6124409-3 (Version None)
Quarter: 2009Q1

REPORT INFORMATION
  Report Type: 
  Country: None (occurrence: None)
  Receive Date: 20090319
  Receipt Date: 20090309
  Transmission Date: 20090719
  Serious: Yes (Other)
  Sender: FDA-Public Use
  Company Number: TW-WYE-H08618409

PATIENT
  Age: 83 Year
  Sex: Male

DRUGS (3)
  1. AMIODARONE HCL [Suspect]
     Indication: ATRIAL FIBRILLATION
     Route: 048
     Dates: start: 20020701, end: 20040101
  2. EPOGEN [Concomitant]
     Indication: NEPHROGENIC ANAEMIA
     Dosage: DOSE NOT PROVIDED/BIWEEKLY
     Dates: start: 20020701, end: 20040601
  3. EPOGEN [Concomitant]
     Dosage: NOT PROVIDED

REACTIONS (3)
  - ANAEMIA [None]
  - CONDITION AGGRAVATED [None]
  - HYPOTHYROIDISM [None]
